FAERS Safety Report 9929859 (Version 1)
Quarter: 2014Q1

REPORT INFORMATION
  Report Type: Spontaneous
  Country: US (occurrence: US)
  Receive Date: 20140227
  Receipt Date: 20140227
  Transmission Date: 20141002
  Serious: No
  Sender: FDA-Public Use
  Company Number: US-ABBVIE-12P-163-1024034-00

PATIENT
  Age: 51 Year
  Sex: Male

DRUGS (2)
  1. HUMIRA (ABBOTT) [Suspect]
     Indication: PSORIASIS
     Dosage: PSORIASIS STARTER PACK
     Dates: start: 20121125, end: 20121125
  2. HUMIRA (ABBOTT) [Suspect]
     Dates: start: 20121202

REACTIONS (3)
  - Gastroenteritis viral [Recovering/Resolving]
  - Vomiting [Recovered/Resolved]
  - Diarrhoea [Recovering/Resolving]
